FAERS Safety Report 6809306-X (Version None)
Quarter: 2010Q2

REPORT INFORMATION
  Report Type: 
  Country: None (occurrence: None)
  Receive Date: 20100630
  Receipt Date: 20100616
  Transmission Date: 20101027
  Serious: Yes (Other)
  Sender: FDA-Public Use
  Company Number: IT-RANBAXY-2010RR-35187

PATIENT
  Age: 48 Year
  Sex: Female

DRUGS (1)
  1. CLARITHROMYCIN [Suspect]

REACTIONS (2)
  - LIP OEDEMA [None]
  - PARAESTHESIA [None]
